FAERS Safety Report 5606878-8 (Version None)
Quarter: 2008Q1

REPORT INFORMATION
  Report Type: 
  Country: None (occurrence: None)
  Receive Date: 20080125
  Receipt Date: 20080114
  Transmission Date: 20080703
  Serious: Yes (Other)
  Sender: FDA-Public Use
  Company Number: SPV1-2008-00038

PATIENT
  Age: 48 Year
  Sex: Female

DRUGS (1)
  1. ADDERALL XR 30 [Suspect]
     Dates: end: 20080101

REACTIONS (1)
  - BRONCHOSPASM [None]
